FAERS Safety Report 22636025 (Version 2)
Quarter: 2023Q2

REPORT INFORMATION
  Report Type: Spontaneous
  Country: US (occurrence: US)
  Receive Date: 20230623
  Receipt Date: 20230628
  Transmission Date: 20230721
  Serious: Yes (Death, Other)
  Sender: FDA-Public Use
  Company Number: US-PFIZER INC-PV202300109103

PATIENT
  Age: 75 Year
  Sex: Female

DRUGS (1)
  1. TOFACITINIB CITRATE [Suspect]
     Active Substance: TOFACITINIB CITRATE
     Indication: Rheumatoid arthritis
     Dosage: UNK

REACTIONS (2)
  - Anti-neutrophil cytoplasmic antibody positive vasculitis [Fatal]
  - Glomerulonephritis rapidly progressive [Fatal]
